FAERS Safety Report 21245896 (Version 1)
Quarter: 2022Q3

REPORT INFORMATION
  Report Type: Spontaneous
  Country: US (occurrence: US)
  Receive Date: 20220824
  Receipt Date: 20220824
  Transmission Date: 20221027
  Serious: Yes (Hospitalization)
  Sender: FDA-Public Use
  Company Number: US-BRISTOL-MYERS SQUIBB COMPANY-2022-092670

PATIENT
  Age: 70 Year
  Sex: Male

DRUGS (2)
  1. OPDIVO [Suspect]
     Active Substance: NIVOLUMAB
     Indication: Chest X-ray abnormal
     Dosage: DOSE : OPDIVO 240MG YERVOY 90MG;     FREQ : OPDIVO EVERY 2 WEEKS, YERVOY EVERY 6 WEEKS
     Route: 042
  2. YERVOY [Suspect]
     Active Substance: IPILIMUMAB
     Indication: Chest X-ray abnormal
     Dosage: DOSE : OPDIVO 240MG YERVOY 90MG;     FREQ : OPDIVO EVERY 2 WEEKS, YERVOY EVERY 6 WEEKS
     Route: 042

REACTIONS (1)
  - Adverse event [Unknown]
